FAERS Safety Report 10177027 (Version 2)
Quarter: 2014Q2

REPORT INFORMATION
  Report Type: Spontaneous
  Country: US (occurrence: US)
  Receive Date: 20140516
  Receipt Date: 20140529
  Transmission Date: 20141212
  Serious: Yes (Hospitalization)
  Sender: FDA-Public Use
  Company Number: US-TARO-2014P1004046

PATIENT
  Age: 51 Year
  Sex: Male
  Weight: 90.72 kg

DRUGS (6)
  1. UNKNOWN (BLINDED) STUDY DRUG [Suspect]
     Indication: ACTINIC KERATOSIS
     Route: 061
     Dates: start: 20140320
  2. NAPROXEN SODIUM [Concomitant]
     Route: 048
     Dates: start: 201402
  3. BUSPIRONE [Concomitant]
     Route: 048
     Dates: start: 2005
  4. BUPROPION [Concomitant]
     Route: 048
     Dates: start: 2000
  5. ATORVASTATIN [Concomitant]
     Route: 048
     Dates: start: 2010
  6. ADVIL [Concomitant]
     Route: 048
     Dates: start: 1980, end: 201402

REACTIONS (1)
  - Appendicitis perforated [Recovered/Resolved]
